FAERS Safety Report 8834711 (Version 1)
Quarter: 2012Q4

REPORT INFORMATION
  Report Type: Spontaneous
  Country: US (occurrence: None)
  Receive Date: 20120925
  Receipt Date: 20120925
  Transmission Date: 20130627
  Serious: Yes (Hospitalization)
  Sender: FDA-Public Use
  Company Number: 2012PROUSA01996

PATIENT
  Age: 66 Year
  Sex: Male

DRUGS (2)
  1. PROVENGE (SIPULEUCEL-T) SUSPENSION, 250 ML [Suspect]
     Indication: POOR VENOUS ACCESS
     Dosage: 250 ml, single, intravenous
     Route: 042
     Dates: start: 20120816, end: 20120816
  2. PROVENGE (SIPULEUCEL-T) SUSPENSION, 250 ML [Suspect]
     Indication: POOR VENOUS ACCESS
     Dosage: 250 ml, single, intravenous
     Route: 042
     Dates: start: 20120830, end: 20120830

REACTIONS (1)
  - Bacteraemia [None]
